APPROVED DRUG PRODUCT: CIPROFLOXACIN HYDROCHLORIDE
Active Ingredient: CIPROFLOXACIN HYDROCHLORIDE
Strength: EQ 0.2% BASE
Dosage Form/Route: SOLUTION/DROPS;OTIC
Application: A217887 | Product #001 | TE Code: AB
Applicant: NEW HEIGHTSRX LLC
Approved: Nov 5, 2024 | RLD: No | RS: No | Type: RX